FAERS Safety Report 13875070 (Version 1)
Quarter: 2017Q3

REPORT INFORMATION
  Report Type: Spontaneous
  Country: US (occurrence: US)
  Receive Date: 20170816
  Receipt Date: 20170816
  Transmission Date: 20171127
  Serious: No
  Sender: FDA-Public Use
  Company Number: US-ROCHE-1147045

PATIENT
  Age: 85 Year
  Sex: Male

DRUGS (1)
  1. LUCENTIS [Suspect]
     Active Substance: RANIBIZUMAB
     Indication: NEOVASCULAR AGE-RELATED MACULAR DEGENERATION
     Route: 042
     Dates: start: 20121010

REACTIONS (3)
  - Eye irritation [Unknown]
  - Dry eye [Unknown]
  - Visual impairment [Unknown]

NARRATIVE: CASE EVENT DATE: 20121010
